FAERS Safety Report 19435740 (Version 1)
Quarter: 2021Q2

REPORT INFORMATION
  Report Type: Spontaneous
  Country: IN (occurrence: IN)
  Receive Date: 20210618
  Receipt Date: 20210618
  Transmission Date: 20210717
  Serious: Yes (Other)
  Sender: FDA-Public Use
  Company Number: IN-STRIDES ARCOLAB LIMITED-2021SP006528

PATIENT
  Age: 41 Year
  Sex: Female

DRUGS (6)
  1. PREDNISOLONE ACETATE. [Suspect]
     Active Substance: PREDNISOLONE ACETATE
     Indication: PRODUCT USED FOR UNKNOWN INDICATION
     Dosage: UNK, EVERY 4 HRS (SIX TIMES A DAY)
     Route: 061
  2. HOMATROPINE [Concomitant]
     Active Substance: HOMATROPINE HYDROBROMIDE
     Indication: PRODUCT USED FOR UNKNOWN INDICATION
     Dosage: UNK, BID
     Route: 061
  3. PREDNISOLONE. [Suspect]
     Active Substance: PREDNISOLONE
     Indication: EYE INFLAMMATION
     Dosage: 50 MILLIGRAM, QD
     Route: 048
  4. MOXIFLOXACIN. [Concomitant]
     Active Substance: MOXIFLOXACIN
     Indication: ANTIBIOTIC PROPHYLAXIS
     Dosage: UNK
  5. TOBRAMYCIN. [Concomitant]
     Active Substance: TOBRAMYCIN
     Indication: PRODUCT USED FOR UNKNOWN INDICATION
     Dosage: UNK, QID
     Route: 061
  6. PANTOPRAZOLE [Concomitant]
     Active Substance: PANTOPRAZOLE
     Indication: PRODUCT USED FOR UNKNOWN INDICATION
     Dosage: 40 MILLIGRAM
     Route: 048

REACTIONS (4)
  - Abscess bacterial [Recovered/Resolved]
  - Corneal oedema [Recovered/Resolved]
  - Staphylococcal infection [Recovered/Resolved]
  - Corneal abscess [Recovered/Resolved]
